FAERS Safety Report 15537348 (Version 1)
Quarter: 2018Q4

REPORT INFORMATION
  Report Type: Report from Study
  Country: IE (occurrence: IE)
  Receive Date: 20181022
  Receipt Date: 20181022
  Transmission Date: 20190205
  Serious: Yes (Other)
  Sender: FDA-Public Use
  Company Number: IE-PFIZER INC-2018426803

PATIENT

DRUGS (2)
  1. THIOTEPA. [Suspect]
     Active Substance: THIOTEPA
     Dosage: UNK, CYCLIC HDC 3 SEQUENTIAL CYCLES (C) ADMINISTERED AFTER 3 C OF INDUCTION COMBINATION CHEMOTHERAPY
  2. CARBOPLATIN. [Suspect]
     Active Substance: CARBOPLATIN
     Dosage: UNK, CYCLIC HDC 3 SEQUENTIAL CYCLES (C) ADMINISTERED AFTER 3 C OF INDUCTION COMBINATION CHEMOTHERAPY

REACTIONS (1)
  - Ototoxicity [Unknown]
